FAERS Safety Report 7108785-0 (Version None)
Quarter: 2010Q4

REPORT INFORMATION
  Report Type: 
  Country: None (occurrence: None)
  Receive Date: 20101117
  Receipt Date: 20090604
  Transmission Date: 20110411
  Serious: Yes (Other)
  Sender: FDA-Public Use
  Company Number: FR-ACTELION-A-CH2009-25693

PATIENT
  Sex: Female
  Weight: 52 kg

DRUGS (9)
  1. TRACLEER [Suspect]
     Indication: PULMONARY ARTERIAL HYPERTENSION
     Dosage: 62.5 MG, BID
     Route: 048
     Dates: start: 20090324
  2. TRACLEER [Suspect]
     Dosage: 125 MG, BID
     Route: 048
  3. SOLUPRED [Suspect]
  4. PREVISCAN [Concomitant]
  5. SERETIDE [Concomitant]
  6. ALDACTONE [Concomitant]
  7. MOPRAL [Concomitant]
  8. AVLOCARDYL [Concomitant]
  9. LEVOTHYROXINE SODIUM [Concomitant]

REACTIONS (4)
  - APLASTIC ANAEMIA [None]
  - DIABETES MELLITUS INADEQUATE CONTROL [None]
  - HAEMOGLOBIN DECREASED [None]
  - SYSTEMIC INFLAMMATORY RESPONSE SYNDROME [None]
